FAERS Safety Report 7623276-6 (Version None)
Quarter: 2011Q3

REPORT INFORMATION
  Report Type: 
  Country: None (occurrence: None)
  Receive Date: 20110720
  Receipt Date: 20110713
  Transmission Date: 20111222
  Serious: Yes (Hospitalization)
  Sender: FDA-Public Use
  Company Number: US-ROCHE-749255

PATIENT
  Sex: Male
  Weight: 95.2 kg

DRUGS (8)
  1. BEVACIZUMAB [Suspect]
     Indication: NON-SMALL CELL LUNG CANCER
     Route: 042
     Dates: start: 20100902, end: 20101110
  2. PACLITAXEL [Suspect]
     Indication: NON-SMALL CELL LUNG CANCER
     Route: 065
     Dates: start: 20100902, end: 20101110
  3. SIMVASTATIN [Concomitant]
  4. KEPPRA [Concomitant]
     Indication: CONVULSION
  5. BEVACIZUMAB [Suspect]
     Route: 042
     Dates: start: 20101216
  6. SEROQUEL [Concomitant]
     Indication: BIPOLAR DISORDER
  7. ONDANSETRON [Suspect]
     Indication: ANTIEMETIC SUPPORTIVE CARE
     Route: 065
  8. CARBOPLATIN [Suspect]
     Indication: NON-SMALL CELL LUNG CANCER
     Dosage: DOSE 6 AUC
     Route: 042
     Dates: start: 20100902, end: 20101110

REACTIONS (2)
  - URINARY TRACT INFECTION [None]
  - ABDOMINAL PAIN [None]
